FAERS Safety Report 17162727 (Version 1)
Quarter: 2019Q4

REPORT INFORMATION
  Report Type: Spontaneous
  Country: US (occurrence: US)
  Receive Date: 20191216
  Receipt Date: 20191216
  Transmission Date: 20200122
  Serious: Yes (Disabling, Other)
  Sender: FDA-Public Use
  Company Number: None

PATIENT
  Age: 50 Year
  Sex: Female
  Weight: 54 kg

DRUGS (6)
  1. FINASTERIDE. [Suspect]
     Active Substance: FINASTERIDE
     Route: 048
     Dates: start: 20191125, end: 20191211
  2. KEPPRA [Concomitant]
     Active Substance: LEVETIRACETAM
  3. LOW DOSE BIRTH CONTROL PILL [Concomitant]
  4. LAMICTAL [Concomitant]
     Active Substance: LAMOTRIGINE
  5. VITAMIN B COMPLEX [Concomitant]
     Active Substance: CYANOCOBALAMIN\DEXPANTHENOL\NIACINAMIDE\PYRIDOXINE HYDROCHLORIDE\RIBOFLAVIN 5^-PHOSPHATE SODIUM\THIAMINE HYDROCHLORIDE\VITAMIN B COMPLEX
  6. AMLODIPINE [Concomitant]
     Active Substance: AMLODIPINE BESYLATE

REACTIONS (3)
  - Drug interaction [None]
  - Product use complaint [None]
  - Seizure [None]

NARRATIVE: CASE EVENT DATE: 20191211
